FAERS Safety Report 13213264 (Version 2)
Quarter: 2017Q1

REPORT INFORMATION
  Report Type: Spontaneous
  Country: PL (occurrence: PL)
  Receive Date: 20170210
  Receipt Date: 20170302
  Transmission Date: 20170428
  Serious: Yes (Death, Hospitalization, Other)
  Sender: FDA-Public Use
  Company Number: PL-GILEAD-2017-0257051

PATIENT
  Age: 65 Year
  Sex: Female

DRUGS (1)
  1. HARVONI [Suspect]
     Active Substance: LEDIPASVIR\SOFOSBUVIR
     Indication: CHRONIC HEPATITIS C
     Dosage: 1 DF, UNK
     Route: 048
     Dates: start: 20161011, end: 20170102

REACTIONS (2)
  - Cerebral haemorrhage [Fatal]
  - Staphylococcal sepsis [Fatal]

NARRATIVE: CASE EVENT DATE: 20170115
